FAERS Safety Report 13889644 (Version 1)
Quarter: 2017Q3

REPORT INFORMATION
  Report Type: Spontaneous
  Country: US (occurrence: US)
  Receive Date: 20170816
  Receipt Date: 20170816
  Transmission Date: 20171127
  Serious: Yes (Hospitalization, Disabling)
  Sender: FDA-Public Use
  Company Number: None

PATIENT
  Age: 81 Year
  Sex: Female
  Weight: 47.7 kg

DRUGS (9)
  1. INSULIN [Concomitant]
     Active Substance: INSULIN NOS
  2. LISINOPRIL. [Concomitant]
     Active Substance: LISINOPRIL
  3. ASPIRIN. [Concomitant]
     Active Substance: ASPIRIN
  4. MIRALAX [Concomitant]
     Active Substance: POLYETHYLENE GLYCOL 3350
  5. GABAPENTIN. [Concomitant]
     Active Substance: GABAPENTIN
  6. EYLEA [Suspect]
     Active Substance: AFLIBERCEPT
     Indication: DIABETIC RETINOPATHY
     Dosage: QUANTITY:1 INJECTION(S);OTHER FREQUENCY:INJECTED BY DOCTOR;?
     Route: 047
     Dates: start: 20161215
  7. OXYCODONE [Concomitant]
     Active Substance: OXYCODONE
  8. SYNTHROID [Concomitant]
     Active Substance: LEVOTHYROXINE SODIUM
  9. CALTRATE [Concomitant]
     Active Substance: CALCIUM CARBONATE

REACTIONS (4)
  - Normal pressure hydrocephalus [None]
  - Incontinence [None]
  - Confusional state [None]
  - Asthenia [None]

NARRATIVE: CASE EVENT DATE: 20161215
